FAERS Safety Report 9406851 (Version 1)
Quarter: 2013Q3

REPORT INFORMATION
  Report Type: Report from Study
  Country: KR (occurrence: KR)
  Receive Date: 20130718
  Receipt Date: 20130718
  Transmission Date: 20140515
  Serious: Yes (Death)
  Sender: FDA-Public Use
  Company Number: PHHY2013KR076114

PATIENT
  Sex: Male

DRUGS (2)
  1. GLIVEC [Suspect]
     Indication: CHRONIC MYELOID LEUKAEMIA
     Dosage: UNK UKN, QD
     Route: 048
     Dates: start: 20110609
  2. GLIVEC [Suspect]
     Dosage: 05 DF, PER DAY
     Route: 048

REACTIONS (1)
  - Death [Fatal]
